FAERS Safety Report 19814898 (Version 1)
Quarter: 2021Q3

REPORT INFORMATION
  Report Type: Spontaneous
  Country: CA (occurrence: CA)
  Receive Date: 20210910
  Receipt Date: 20210910
  Transmission Date: 20211014
  Serious: Yes (Other)
  Sender: FDA-Public Use
  Company Number: CA-NOVOPROD-844013

PATIENT
  Age: 58 Year
  Sex: Male

DRUGS (1)
  1. OZEMPIC [Suspect]
     Active Substance: SEMAGLUTIDE
     Indication: WEIGHT CONTROL
     Dosage: 0.6 MG, QW
     Route: 058

REACTIONS (2)
  - Product use in unapproved indication [Unknown]
  - Nephrolithiasis [Recovering/Resolving]
